FAERS Safety Report 7010597-3 (Version None)
Quarter: 2010Q3

REPORT INFORMATION
  Report Type: 
  Country: None (occurrence: None)
  Receive Date: 20100923
  Receipt Date: 20100921
  Transmission Date: 20110219
  Serious: Yes (Hospitalization)
  Sender: FDA-Public Use
  Company Number: FR-AMGEN-KDC439748

PATIENT
  Sex: Female

DRUGS (3)
  1. VECTIBIX [Suspect]
     Indication: BREAST CANCER
     Route: 042
     Dates: start: 20100616
  2. NEULASTA [Suspect]
     Indication: BREAST CANCER
     Route: 058
  3. TAXOTERE [Suspect]
     Route: 058
     Dates: start: 20100909

REACTIONS (3)
  - NAUSEA [None]
  - PAIN [None]
  - VOMITING [None]
